FAERS Safety Report 9522788 (Version 2)
Quarter: 2013Q3

REPORT INFORMATION
  Report Type: Report from Study
  Country: BR (occurrence: BR)
  Receive Date: 20130913
  Receipt Date: 20130913
  Transmission Date: 20140515
  Serious: Yes (Other)
  Sender: FDA-Public Use
  Company Number: PHHY2013BR073754

PATIENT
  Sex: Female
  Weight: 68 kg

DRUGS (5)
  1. ACLASTA [Suspect]
     Indication: OSTEOPOROSIS
     Dosage: 5 MG, UNK
     Route: 042
     Dates: start: 2013
  2. MODURETIC [Concomitant]
     Indication: HYPERTENSION
     Dosage: 1 TABLET, DAILY
     Route: 048
  3. RIVOTRIL [Concomitant]
     Indication: SLEEP DISORDER
     Dosage: 1 TABLET, DAILY
     Route: 048
  4. ACETYLSALICYLIC ACID [Concomitant]
     Indication: BLOOD DISORDER
     Dosage: 1 TABLET, DAILY
     Route: 048
  5. ANTIBIOTICS [Concomitant]
     Dosage: UNK UKN, UNK

REACTIONS (7)
  - Cataract [Not Recovered/Not Resolved]
  - Fall [Recovering/Resolving]
  - Rib fracture [Recovering/Resolving]
  - Gastric disorder [Not Recovered/Not Resolved]
  - Spinal pain [Not Recovered/Not Resolved]
  - Decreased appetite [Not Recovered/Not Resolved]
  - Arthralgia [Not Recovered/Not Resolved]
